FAERS Safety Report 8599887-0 (Version None)
Quarter: 2012Q3

REPORT INFORMATION
  Report Type: 
  Country: None (occurrence: None)
  Receive Date: 20120816
  Receipt Date: 20120625
  Transmission Date: 20120928
  Serious: Yes (Other)
  Sender: FDA-Public Use
  Company Number: US-AMGEN-USASP2010000468

PATIENT
  Age: 26 Year
  Sex: Female
  Weight: 71.202 kg

DRUGS (2)
  1. PROMACTA [Concomitant]
     Dosage: 25 MG, QOD
     Route: 048
  2. NPLATE [Suspect]
     Indication: IDIOPATHIC THROMBOCYTOPENIC PURPURA
     Dosage: 340 MUG, QWK
     Route: 058
     Dates: start: 20081104, end: 20090203

REACTIONS (3)
  - DRUG INEFFECTIVE [None]
  - CLUSTER HEADACHE [None]
  - INFLUENZA LIKE ILLNESS [None]
